FAERS Safety Report 6891026-7 (Version None)
Quarter: 2010Q3

REPORT INFORMATION
  Report Type: 
  Country: None (occurrence: None)
  Receive Date: 20100731
  Receipt Date: 20090510
  Transmission Date: 20110219
  Serious: No
  Sender: FDA-Public Use
  Company Number: US-PFIZER INC-2009181450

PATIENT
  Sex: Female
  Weight: 63.502 kg

DRUGS (3)
  1. LIPITOR [Suspect]
     Indication: BLOOD CHOLESTEROL INCREASED
     Dosage: 20 MG, 1X/DAY
     Dates: end: 20090101
  2. PAXIL [Concomitant]
     Dosage: UNK
  3. IMITREX [Concomitant]
     Dosage: UNK

REACTIONS (7)
  - ARTHRALGIA [None]
  - DEPRESSION [None]
  - ELEVATED MOOD [None]
  - LIGAMENT DISORDER [None]
  - MUSCLE DISORDER [None]
  - PAIN IN EXTREMITY [None]
  - TENDON DISORDER [None]
